FAERS Safety Report 11302791 (Version 1)
Quarter: 2015Q3

REPORT INFORMATION
  Report Type: Spontaneous
  Country: US (occurrence: None)
  Receive Date: 20150723
  Receipt Date: 20150723
  Transmission Date: 20151125
  Serious: No
  Sender: FDA-Public Use
  Company Number: None

PATIENT
  Age: 60 Year
  Sex: Male
  Weight: 95.26 kg

DRUGS (6)
  1. METROPOL [Concomitant]
  2. STATIN [Concomitant]
     Active Substance: UNSPECIFIED INGREDIENT
  3. LISINOPRIL. [Concomitant]
     Active Substance: LISINOPRIL
  4. ZOLOFT [Concomitant]
     Active Substance: SERTRALINE HYDROCHLORIDE
  5. ASPRIN [Concomitant]
     Active Substance: ASPIRIN
  6. GABAPENTIN. [Suspect]
     Active Substance: GABAPENTIN
     Indication: NEURALGIA
     Dosage: 1/DAY, ONCE DAILY, TAKEN BY MOUTH
     Route: 048
     Dates: start: 20150520, end: 20150722

REACTIONS (7)
  - Depression [None]
  - Sleep talking [None]
  - Aggression [None]
  - Nervousness [None]
  - Anxiety [None]
  - Muscle twitching [None]
  - Mood swings [None]

NARRATIVE: CASE EVENT DATE: 20150701
